FAERS Safety Report 9895334 (Version 1)
Quarter: 2014Q1

REPORT INFORMATION
  Report Type: Spontaneous
  Country: US (occurrence: US)
  Receive Date: 20140213
  Receipt Date: 20140213
  Transmission Date: 20141002
  Serious: No
  Sender: FDA-Public Use
  Company Number: US-BRISTOL-MYERS SQUIBB COMPANY-18949545

PATIENT
  Age: 48 Year
  Sex: Female

DRUGS (3)
  1. ABATACEPT SUBQ INJECTION 125MG/ML [Suspect]
     Route: 058
  2. METHOTREXATE [Suspect]
  3. LYRICA [Suspect]

REACTIONS (3)
  - Pruritus [Unknown]
  - Rash [Unknown]
  - Urticaria [Unknown]
